APPROVED DRUG PRODUCT: DESOGESTREL AND ETHINYL ESTRADIOL
Active Ingredient: DESOGESTREL; ETHINYL ESTRADIOL
Strength: 0.15MG,N/A;0.02MG,0.01MG
Dosage Form/Route: TABLET;ORAL-28
Application: A076916 | Product #001
Applicant: DR REDDYS LABORATORIES SA
Approved: Dec 29, 2008 | RLD: No | RS: No | Type: DISCN